FAERS Safety Report 8849523 (Version 1)
Quarter: 2012Q4

REPORT INFORMATION
  Report Type: Spontaneous
  Country: US (occurrence: None)
  Receive Date: 20121018
  Receipt Date: 20121018
  Transmission Date: 20130627
  Serious: Yes (Other)
  Sender: FDA-Public Use
  Company Number: None

PATIENT
  Age: 54 Year
  Sex: Female
  Weight: 54.43 kg

DRUGS (6)
  1. CRESTOR [Suspect]
     Indication: CORONARY ARTERY DISEASE
     Route: 048
     Dates: start: 20111229, end: 20120309
  2. PLAVIX [Concomitant]
  3. ASPIRIN [Concomitant]
  4. ATENOLOL [Concomitant]
  5. PROMUS [Concomitant]
  6. ION MONORAIL [Concomitant]

REACTIONS (6)
  - Fatigue [None]
  - Myalgia [None]
  - Myalgia [None]
  - Pain in extremity [None]
  - Pain in extremity [None]
  - Pain [None]
